FAERS Safety Report 19359372 (Version 1)
Quarter: 2021Q2

REPORT INFORMATION
  Report Type: Spontaneous
  Country: DE (occurrence: DE)
  Receive Date: 20210602
  Receipt Date: 20210602
  Transmission Date: 20210717
  Serious: Yes (Life-Threatening, Hospitalization, Other)
  Sender: FDA-Public Use
  Company Number: DE-MYLANLABS-2021M1032223

PATIENT
  Age: 53 Year
  Sex: Female

DRUGS (16)
  1. BUPIVACAINE HYDROCHLORIDE. [Suspect]
     Active Substance: BUPIVACAINE HYDROCHLORIDE
     Dosage: UNK (ON JANUARY 15 AND 17)
     Route: 008
  2. BISOPROLOL [Suspect]
     Active Substance: BISOPROLOL
     Indication: PRODUCT USED FOR UNKNOWN INDICATION
     Dosage: 5 MILLIGRAM (1X5MG)
     Route: 065
  3. TORASEMIDE [Suspect]
     Active Substance: TORSEMIDE
     Indication: PRODUCT USED FOR UNKNOWN INDICATION
     Dosage: 5 MILLIGRAM (1X5MG)
     Route: 065
  4. BUPIVACAINE HYDROCHLORIDE. [Suspect]
     Active Substance: BUPIVACAINE HYDROCHLORIDE
     Indication: INFILTRATION ANAESTHESIA
     Dosage: UNK (ON JANUARY 14 AND 18)
     Route: 050
  5. BUPIVACAINE HYDROCHLORIDE. [Suspect]
     Active Substance: BUPIVACAINE HYDROCHLORIDE
     Dosage: UNK (ON JANUARY 21)
     Route: 037
  6. CANDESARTAN. [Suspect]
     Active Substance: CANDESARTAN
     Indication: PRODUCT USED FOR UNKNOWN INDICATION
     Dosage: 16 MILLIGRAM (1X16MG)
     Route: 065
  7. DEXAMETHASONE. [Suspect]
     Active Substance: DEXAMETHASONE
     Indication: INFILTRATION ANAESTHESIA
     Dosage: UNK
     Route: 050
  8. NALOXONE/OXYCODONE [Suspect]
     Active Substance: NALOXONE HYDROCHLORIDE\OXYCODONE HYDROCHLORIDE
     Indication: PAIN
     Dosage: 40 MILLIGRAM, QD (20 MG, BID)
     Route: 048
  9. TRIAMCINOLONE [Suspect]
     Active Substance: TRIAMCINOLONE
     Indication: INFILTRATION ANAESTHESIA
     Dosage: UNK (JANUARY 15 AND 17)
     Route: 050
  10. CELECOXIB. [Suspect]
     Active Substance: CELECOXIB
     Indication: PAIN
     Dosage: 200 MILLIGRAM, QD (100 MG, BID)
     Route: 048
  11. METAMIZOLE                         /06276704/ [Suspect]
     Active Substance: METAMIZOLE SODIUM
     Indication: PAIN
     Dosage: 1 GRAM (4X1G)
     Route: 042
  12. TRIAMCINOLONE [Suspect]
     Active Substance: TRIAMCINOLONE
     Dosage: UNK (JANUARY 21)
     Route: 037
  13. VALPROATE [Suspect]
     Active Substance: VALPROIC ACID
     Indication: PRODUCT USED FOR UNKNOWN INDICATION
     Dosage: 300 MILLIGRAM (2X300MG)
     Route: 065
  14. AMLODIPINE [Suspect]
     Active Substance: AMLODIPINE BESYLATE
     Indication: PRODUCT USED FOR UNKNOWN INDICATION
     Dosage: 5 MILLIGRAM (1X5MG)
     Route: 065
  15. LEVOTHYROXINE SODIUM. [Suspect]
     Active Substance: LEVOTHYROXINE SODIUM
     Indication: PRODUCT USED FOR UNKNOWN INDICATION
     Dosage: 125 MICROGRAM, QD
     Route: 065
  16. PRILOCAINE HYDROCHLORIDE. [Suspect]
     Active Substance: PRILOCAINE HYDROCHLORIDE
     Indication: INFILTRATION ANAESTHESIA
     Dosage: UNK (ON JANUARY 15 AND 17)
     Route: 008

REACTIONS (1)
  - Necrotising fasciitis [Recovering/Resolving]
